FAERS Safety Report 9172127 (Version 3)
Quarter: 2013Q2

REPORT INFORMATION
  Report Type: Spontaneous
  Country: US (occurrence: US)
  Receive Date: 20130319
  Receipt Date: 20130509
  Transmission Date: 20140414
  Serious: No
  Sender: FDA-Public Use
  Company Number: US-009507513-1303USA005433

PATIENT
  Age: 49 Year
  Sex: Male
  Weight: 82.8 kg

DRUGS (11)
  1. VICTRELIS [Suspect]
     Dosage: 800 MG, TID STARTING ON WEEK 5
     Route: 048
  2. PEGASYS [Suspect]
     Dosage: 90 MICROGRAM, QW
  3. REBETOL [Suspect]
     Dosage: 200 MG, BID
     Route: 048
  4. TRAMADOL HYDROCHLORIDE [Concomitant]
     Dosage: UNK
  5. AVELOX [Concomitant]
     Dosage: UNK MG, UNK
  6. KLONOPIN [Concomitant]
     Dosage: UNK MG, UNK
  7. OMEPRAZOLE [Concomitant]
     Dosage: UNK
     Route: 048
  8. OLANZAPINE [Concomitant]
     Dosage: UNK
  9. CLORAZEPAM [Concomitant]
     Dosage: 2 MG, UNK
  10. SEROQUEL [Concomitant]
     Dosage: 25 MG, UNK
  11. SEROQUEL [Concomitant]
     Dosage: 100 MG, UNK

REACTIONS (16)
  - Visual impairment [Unknown]
  - Pallor [Unknown]
  - Presyncope [Unknown]
  - Influenza like illness [Unknown]
  - Pain [Unknown]
  - Thirst [Unknown]
  - Weight decreased [Unknown]
  - Decreased appetite [Unknown]
  - White blood cell count decreased [Unknown]
  - Red blood cell count decreased [Unknown]
  - Anaemia [Recovering/Resolving]
  - Muscle spasms [Unknown]
  - Dizziness [Unknown]
  - Dizziness [Unknown]
  - White blood cell count decreased [Unknown]
  - Sinusitis [Unknown]
